FAERS Safety Report 18652537 (Version 2)
Quarter: 2021Q1

REPORT INFORMATION
  Report Type: Spontaneous
  Country: US (occurrence: US)
  Receive Date: 20201222
  Receipt Date: 20210219
  Transmission Date: 20210419
  Serious: No
  Sender: FDA-Public Use
  Company Number: US-VIFOR (INTERNATIONAL) INC.-VIT-2020-11799

PATIENT
  Age: 85 Year
  Sex: Female

DRUGS (23)
  1. VELTASSA [Suspect]
     Active Substance: PATIROMER
     Indication: BLOOD POTASSIUM INCREASED
     Dates: start: 2019
  2. TYLENOL EXTRA STRENGTH [Concomitant]
     Active Substance: ACETAMINOPHEN
  3. NITROGLYCERIN. [Concomitant]
     Active Substance: NITROGLYCERIN
  4. AZELASTINE. [Concomitant]
     Active Substance: AZELASTINE HYDROCHLORIDE
  5. LOPERAMIDE [Concomitant]
     Active Substance: LOPERAMIDE
  6. TRAJENTA [Concomitant]
     Active Substance: LINAGLIPTIN
  7. ALLOPURINOL. [Concomitant]
     Active Substance: ALLOPURINOL
  8. COREG [Concomitant]
     Active Substance: CARVEDILOL
  9. FLUOXETINE HYDROCHLORIDE. [Concomitant]
     Active Substance: FLUOXETINE HYDROCHLORIDE
  10. VELTASSA [Suspect]
     Active Substance: PATIROMER
     Dates: start: 202011
  11. GLYCERIN. [Concomitant]
     Active Substance: GLYCERIN
  12. HYDRALAZINE [Concomitant]
     Active Substance: HYDRALAZINE HYDROCHLORIDE
  13. HYDROEYE [Concomitant]
     Active Substance: MINERALS\OMEGA-3 FATTY ACIDS\VITAMINS
  14. XANAX [Concomitant]
     Active Substance: ALPRAZOLAM
  15. LOSARTAN. [Concomitant]
     Active Substance: LOSARTAN
  16. SINGULAIR [Concomitant]
     Active Substance: MONTELUKAST SODIUM
  17. MULTIVITAMIN [Concomitant]
     Active Substance: VITAMINS
  18. PROAIR HFA [Concomitant]
     Active Substance: ALBUTEROL SULFATE
  19. VELTASSA [Suspect]
     Active Substance: PATIROMER
     Dates: start: 2019
  20. DEMADEX [Concomitant]
     Active Substance: TORSEMIDE
  21. GARLIC PILL [Concomitant]
  22. BIOTIN [Concomitant]
     Active Substance: BIOTIN
  23. FISH OIL [Concomitant]
     Active Substance: FISH OIL

REACTIONS (4)
  - Abdominal pain [Recovering/Resolving]
  - Inappropriate schedule of product administration [Unknown]
  - Product dose omission issue [Unknown]
  - Product quality issue [Unknown]

NARRATIVE: CASE EVENT DATE: 2019
